FAERS Safety Report 4884803-5 (Version None)
Quarter: 2005Q4

REPORT INFORMATION
  Report Type: 
  Country: None (occurrence: None)
  Receive Date: 20051201
  Receipt Date: 20050909
  Transmission Date: 20060501
  Serious: No
  Sender: FDA-Public Use
  Company Number: 2005PV001949

PATIENT
  Age: 56 Year
  Sex: Female
  Weight: 92.9874 kg

DRUGS (5)
  1. BYETTA [Suspect]
     Indication: DIABETES MELLITUS NON-INSULIN-DEPENDENT
     Dosage: 5 MCG; BID; SC
     Route: 058
     Dates: start: 20050901, end: 20050905
  2. BYETTA [Suspect]
     Indication: DIABETES MELLITUS NON-INSULIN-DEPENDENT
     Dosage: 5 MCG; BID; SC
     Route: 058
     Dates: start: 20050909
  3. AVANDIA [Concomitant]
  4. GLIPIZIDE [Concomitant]
  5. INSULIN [Concomitant]

REACTIONS (7)
  - ANOREXIA [None]
  - BLOOD GLUCOSE INCREASED [None]
  - DIARRHOEA [None]
  - NAUSEA [None]
  - PAIN [None]
  - PYREXIA [None]
  - VISUAL ACUITY REDUCED [None]
